FAERS Safety Report 8008196-X (Version None)
Quarter: 2011Q4

REPORT INFORMATION
  Report Type: 
  Country: None (occurrence: None)
  Receive Date: 20111222
  Receipt Date: 20111222
  Transmission Date: 20120403
  Serious: No
  Sender: FDA-Public Use
  Company Number: None

PATIENT
  Age: 68 Year
  Sex: Female
  Weight: 63.5036 kg

DRUGS (1)
  1. DOXYCYCLINE [Suspect]
     Indication: OCULAR HYPERAEMIA
     Dosage: 1 TABLET 2 TIMES PER DAY ORAL
     Route: 048
     Dates: start: 20111101, end: 20111114

REACTIONS (2)
  - RASH [None]
  - PRURITUS [None]
